FAERS Safety Report 21529354 (Version 9)
Quarter: 2025Q4

REPORT INFORMATION
  Report Type: Report from Study
  Country: US (occurrence: None)
  Receive Date: 20221031
  Receipt Date: 20251229
  Transmission Date: 20260118
  Serious: Yes (Other)
  Sender: UCB
  Company Number: US-UCBSA-2022062773

PATIENT
  Age: 3 Year
  Weight: 18.1 kg

DRUGS (10)
  1. FENFLURAMINE [Suspect]
     Active Substance: FENFLURAMINE
     Indication: Severe myoclonic epilepsy of infancy
     Dosage: 0.60 MILLIGRAM PER KILOGRAM PER DAY (TOTAL DOSAGE OF 11 MILLIGRAM PER DAY)
     Route: 061
  2. FENFLURAMINE [Suspect]
     Active Substance: FENFLURAMINE
     Dosage: 2.5 MILLILITER, 2X/DAY (BID)
     Route: 061
  3. FENFLURAMINE [Suspect]
     Active Substance: FENFLURAMINE
     Dosage: 2.5 MILLILITER, 2X/DAY (BID)
     Route: 061
  4. FENFLURAMINE [Suspect]
     Active Substance: FENFLURAMINE
     Dosage: 2.5 MILLILITER, 2X/DAY (BID)
     Route: 061
  5. FENFLURAMINE [Suspect]
     Active Substance: FENFLURAMINE
     Dosage: 5.5 MILLILITER, 2X/DAY (BID)
     Route: 061
  6. FENFLURAMINE [Suspect]
     Active Substance: FENFLURAMINE
     Dosage: 2.5 MILLILITER (5.5 MG) TWICE DAILY
     Route: 061
  7. FENFLURAMINE [Suspect]
     Active Substance: FENFLURAMINE
     Dosage: 2.5 MILLILITER, 2X/DAY (BID)
     Route: 061
  8. FENFLURAMINE [Suspect]
     Active Substance: FENFLURAMINE
     Dosage: 2.5 MILLILITER, 2X/DAY (BID)
     Route: 061
  9. FENFLURAMINE [Suspect]
     Active Substance: FENFLURAMINE
     Dosage: 0.57 MILLIGRAM/KILOGRAM/DAY TOTALLY 11 MILLIGRAM PER DAY.
     Route: 061
  10. FENFLURAMINE [Suspect]
     Active Substance: FENFLURAMINE
     Dosage: 2.5 MILLILITER, 2X/DAY (BID)
     Route: 061

REACTIONS (5)
  - Seizure [Not Recovered/Not Resolved]
  - Mood swings [Recovered/Resolved]
  - Cardiac murmur [Not Recovered/Not Resolved]
  - Atrial septal defect [Not Recovered/Not Resolved]
  - Product colour issue [Unknown]
